FAERS Safety Report 20042164 (Version 2)
Quarter: 2021Q4

REPORT INFORMATION
  Report Type: Spontaneous
  Country: US (occurrence: None)
  Receive Date: 20211108
  Receipt Date: 20211119
  Transmission Date: 20220303
  Serious: No
  Sender: FDA-Public Use
  Company Number: 2021A784400

PATIENT
  Age: 738 Month
  Sex: Male
  Weight: 80.7 kg

DRUGS (1)
  1. BEVESPI AEROSPHERE [Suspect]
     Active Substance: FORMOTEROL FUMARATE\GLYCOPYRROLATE
     Indication: Chronic obstructive pulmonary disease
     Dosage: 9MCG/4.8MCG , UNKNOWN FREQUENCY UNKNOWN
     Route: 055
     Dates: start: 2013

REACTIONS (5)
  - Dyspnoea [Unknown]
  - Rheumatoid arthritis [Unknown]
  - Incorrect dose administered by device [Unknown]
  - Device malfunction [Unknown]
  - Wrong technique in product usage process [Unknown]

NARRATIVE: CASE EVENT DATE: 20210901
